FAERS Safety Report 21143613 (Version 2)
Quarter: 2022Q3

REPORT INFORMATION
  Report Type: Report from Study
  Country: US (occurrence: US)
  Receive Date: 20220728
  Receipt Date: 20220802
  Transmission Date: 20221027
  Serious: Yes (Other)
  Sender: FDA-Public Use
  Company Number: US-PFIZER INC-202200998783

PATIENT
  Age: 3 Year

DRUGS (5)
  1. DOXORUBICIN HYDROCHLORIDE [Suspect]
     Active Substance: DOXORUBICIN HYDROCHLORIDE
     Indication: Atypical teratoid/rhabdoid tumour of CNS
     Dosage: 480 MG/M2, CYCLIC
  2. CYCLOPHOSPHAMIDE [Suspect]
     Active Substance: CYCLOPHOSPHAMIDE
     Indication: Atypical teratoid/rhabdoid tumour of CNS
     Dosage: 12000 MG/M2, CYCLIC
  3. CISPLATIN [Suspect]
     Active Substance: CISPLATIN
     Indication: Atypical teratoid/rhabdoid tumour of CNS
     Dosage: 360 MG/M2, CYCLIC
  4. ETOPOSIDE [Suspect]
     Active Substance: ETOPOSIDE
     Indication: Atypical teratoid/rhabdoid tumour of CNS
     Dosage: 900 MG/M2, CYCLIC
  5. TEMOZOLOMIDE [Suspect]
     Active Substance: TEMOZOLOMIDE
     Indication: Atypical teratoid/rhabdoid tumour of CNS
     Dosage: 2000 MG/M2, CYCLIC

REACTIONS (2)
  - Second primary malignancy [Recovering/Resolving]
  - Juvenile chronic myelomonocytic leukaemia [Recovering/Resolving]
